FAERS Safety Report 6829605-5 (Version None)
Quarter: 2010Q3

REPORT INFORMATION
  Report Type: 
  Country: None (occurrence: None)
  Receive Date: 20100709
  Receipt Date: 20070423
  Transmission Date: 20110219
  Serious: Yes (Other)
  Sender: FDA-Public Use
  Company Number: US-PFIZER INC-2007008780

PATIENT
  Sex: Female

DRUGS (1)
  1. CHANTIX [Suspect]
     Indication: SMOKING CESSATION THERAPY
     Dates: start: 20070210, end: 20070226

REACTIONS (4)
  - ABNORMAL DREAMS [None]
  - AGITATION [None]
  - DEPRESSED MOOD [None]
  - NERVOUSNESS [None]
